FAERS Safety Report 7399102-X (Version None)
Quarter: 2011Q1

REPORT INFORMATION
  Report Type: 
  Country: None (occurrence: None)
  Receive Date: 20110328
  Receipt Date: 20110310
  Transmission Date: 20110831
  Serious: Yes (Life-Threatening, Other)
  Sender: FDA-Public Use
  Company Number: 2011P1004905

PATIENT
  Sex: Female

DRUGS (5)
  1. WARFARIN SODIUM [Suspect]
     Indication: PULMONARY EMBOLISM
     Dosage: 2.5/5 MG QD PO; 5 MG QD PO;
     Route: 048
     Dates: start: 20100101
  2. WARFARIN SODIUM [Suspect]
     Indication: THROMBOSIS
     Dosage: 2.5/5 MG QD PO; 5 MG QD PO;
     Route: 048
     Dates: start: 20100101
  3. WARFARIN SODIUM [Suspect]
     Indication: PULMONARY EMBOLISM
     Dosage: 2.5/5 MG QD PO; 5 MG QD PO;
     Route: 048
     Dates: start: 20060101, end: 20100101
  4. WARFARIN SODIUM [Suspect]
     Indication: THROMBOSIS
     Dosage: 2.5/5 MG QD PO; 5 MG QD PO;
     Route: 048
     Dates: start: 20060101, end: 20100101
  5. LOVENOX [Suspect]
     Indication: PULMONARY THROMBOSIS
     Dosage: Q12H;

REACTIONS (3)
  - THYROID DISORDER [None]
  - EYE OPERATION [None]
  - HAEMORRHAGE INTRACRANIAL [None]
